FAERS Safety Report 5498343-6 (Version None)
Quarter: 2007Q4

REPORT INFORMATION
  Report Type: 
  Country: None (occurrence: None)
  Receive Date: 20071025
  Receipt Date: 20070604
  Transmission Date: 20080405
  Serious: No
  Sender: FDA-Public Use
  Company Number: A0649868A

PATIENT
  Age: 75 Year
  Sex: Female

DRUGS (10)
  1. ADVAIR DISKUS 100/50 [Suspect]
     Indication: CHRONIC OBSTRUCTIVE PULMONARY DISEASE
     Dosage: 1PUFF TWICE PER DAY
     Route: 055
     Dates: start: 20020101
  2. LIPITOR [Concomitant]
  3. COZAAR [Concomitant]
  4. THEOPHYLLINE [Concomitant]
  5. TORSEMIDE [Concomitant]
  6. POTASSIUM CHLORIDE [Concomitant]
  7. FISH OILS [Concomitant]
  8. CENTRUM SILVER [Concomitant]
  9. ASPIRIN [Concomitant]
  10. CALCIUM [Concomitant]

REACTIONS (4)
  - DRUG INEFFECTIVE [None]
  - DYSPNOEA [None]
  - FUNGAL INFECTION [None]
  - PHARMACEUTICAL PRODUCT COMPLAINT [None]
